FAERS Safety Report 9093670 (Version 1)
Quarter: 2013Q1

REPORT INFORMATION
  Report Type: Spontaneous
  Country: US (occurrence: US)
  Receive Date: 20130201
  Receipt Date: 20130201
  Transmission Date: 20140127
  Serious: No
  Sender: FDA-Public Use
  Company Number: US-GALDERMA-US-GDP-12412804

PATIENT
  Age: 15 Year
  Sex: Female

DRUGS (2)
  1. EPIDUO (ADAPALENE) [Suspect]
     Indication: ACNE
     Route: 061
     Dates: start: 201103
  2. TRETINOIN [Suspect]
     Indication: ACNE
     Route: 061
     Dates: start: 201103

REACTIONS (1)
  - Depressed mood [Not Recovered/Not Resolved]
